FAERS Safety Report 5695414-6 (Version None)
Quarter: 2008Q2

REPORT INFORMATION
  Report Type: 
  Country: None (occurrence: None)
  Receive Date: 20080403
  Receipt Date: 20080321
  Transmission Date: 20081010
  Serious: Yes (Other)
  Sender: FDA-Public Use
  Company Number: 239043K07USA

PATIENT
  Age: 28 Year
  Sex: Female
  Weight: 88.905 kg

DRUGS (3)
  1. REBIF [Suspect]
     Indication: MULTIPLE SCLEROSIS
     Dosage: 44 MCG, 3 IN 1 WEEKS, SUBCUTANEOUS; 22 MCG, 3 IN 1 WEEKS, SUBCUTANEOUS
     Route: 058
     Dates: start: 20061229
  2. SINGULAIR (MONTELUKAST /01362601/) [Concomitant]
  3. VITAMIN B12 [Concomitant]

REACTIONS (7)
  - BLOOD PRESSURE INCREASED [None]
  - CHEST DISCOMFORT [None]
  - CHEST PAIN [None]
  - DYSPNOEA [None]
  - PANIC ATTACK [None]
  - PILONIDAL CYST [None]
  - SUPRAVENTRICULAR TACHYCARDIA [None]
